FAERS Safety Report 23104066 (Version 1)
Quarter: 2023Q4

REPORT INFORMATION
  Report Type: Spontaneous
  Country: IT (occurrence: IT)
  Receive Date: 20231025
  Receipt Date: 20231025
  Transmission Date: 20240109
  Serious: Yes (Other)
  Sender: FDA-Public Use
  Company Number: IT-PFIZER INC-PV202300169201

PATIENT
  Age: 6 Year
  Sex: Female
  Weight: 16.5 kg

DRUGS (3)
  1. VINCRISTINE SULFATE [Suspect]
     Active Substance: VINCRISTINE SULFATE
     Indication: Nephroblastoma
     Dosage: 1.5 MG/M2, CYCLIC, WEEKLY FOR A TOTAL OF 8 DOSES
  2. DOXORUBICIN HYDROCHLORIDE [Suspect]
     Active Substance: DOXORUBICIN HYDROCHLORIDE
     Indication: Nephroblastoma
     Dosage: 40 MG/M2 PER DOSE FOR A TOTAL OF TWO ADMINISTRATIONS AT AN INTERVAL OF 4 WEEKS
  3. DACTINOMYCIN [Suspect]
     Active Substance: DACTINOMYCIN
     Indication: Nephroblastoma
     Dosage: 1.5 MG/M2 PER DOSE, BOLUS INJECTION FOR 4 ADMINISTRATIONS EVERY 2 WEEKS

REACTIONS (2)
  - Venoocclusive liver disease [Recovered/Resolved]
  - Off label use [Unknown]
